FAERS Safety Report 19949162 (Version 1)
Quarter: 2021Q4

REPORT INFORMATION
  Report Type: Spontaneous
  Country: IT (occurrence: IT)
  Receive Date: 20211013
  Receipt Date: 20211013
  Transmission Date: 20220303
  Serious: Yes (Other)
  Sender: FDA-Public Use
  Company Number: IT-STRIDES ARCOLAB LIMITED-2021SP028585

PATIENT
  Age: 36 Year
  Sex: Male

DRUGS (1)
  1. ZOLPIDEM [Suspect]
     Active Substance: ZOLPIDEM TARTRATE
     Indication: Substance use
     Dosage: 240 MG/DAY AT AVERAGE, I.E. 30 MG EVERY 3 HOURS
     Route: 048

REACTIONS (6)
  - Disinhibition [Recovered/Resolved]
  - Euphoric mood [Recovered/Resolved]
  - Logorrhoea [Recovered/Resolved]
  - Drug abuse [Unknown]
  - Drug dependence [Unknown]
  - Off label use [Unknown]
